FAERS Safety Report 12869414 (Version 1)
Quarter: 2016Q4

REPORT INFORMATION
  Report Type: Report from Study
  Country: US (occurrence: US)
  Receive Date: 20161021
  Receipt Date: 20161021
  Transmission Date: 20170207
  Serious: Yes (Other)
  Sender: FDA-Public Use
  Company Number: US-MALLINCKRODT-T201604941

PATIENT
  Age: 66 Year
  Sex: Female

DRUGS (1)
  1. REPOSITORY CORTICOTROPIN INJECTION [Suspect]
     Active Substance: CORTICOTROPIN
     Indication: RHEUMATOID ARTHRITIS
     Dosage: 80 UNITS, 2 TIMES PER WEEK (WEDNESDAY AND SUNDAY)
     Route: 058
     Dates: start: 20150727, end: 20161002

REACTIONS (6)
  - Blood glucose fluctuation [Unknown]
  - Contusion [Not Recovered/Not Resolved]
  - Peripheral swelling [Unknown]
  - Drug effect decreased [Unknown]
  - Pain in extremity [Unknown]
  - Nausea [Unknown]

NARRATIVE: CASE EVENT DATE: 20160916
